FAERS Safety Report 5281418-4 (Version None)
Quarter: 2007Q1

REPORT INFORMATION
  Report Type: 
  Country: None (occurrence: None)
  Receive Date: 20070323
  Receipt Date: 20070323
  Transmission Date: 20070707
  Serious: Yes (Life-Threatening, Hospitalization, Disabling, Other)
  Sender: FDA-Public Use
  Company Number: None

PATIENT
  Sex: Female
  Weight: 71.2147 kg

DRUGS (1)
  1. ORTHO EVRA [Suspect]

REACTIONS (5)
  - DISEASE RECURRENCE [None]
  - DRUG EXPOSURE DURING PREGNANCY [None]
  - PREGNANCY [None]
  - PULMONARY EMBOLISM [None]
  - THROMBOSIS [None]
